FAERS Safety Report 4614229-0 (Version None)
Quarter: 2005Q1

REPORT INFORMATION
  Report Type: 
  Country: None (occurrence: None)
  Receive Date: 20050315
  Receipt Date: 20050224
  Transmission Date: 20050727
  Serious: Yes (Hospitalization)
  Sender: FDA-Public Use
  Company Number: 20050200047

PATIENT
  Age: 61 Year
  Sex: Male

DRUGS (3)
  1. ATIVAN [Suspect]
     Dosage: 1 MG QD
     Dates: start: 20031230, end: 20040112
  2. AMITRIPTYLINE HCL [Suspect]
     Dosage: 125 MG QD
     Dates: start: 20031230, end: 20040112
  3. ZYPREXA [Suspect]
     Dosage: 5 MG QD
     Dates: start: 20031230, end: 20040112

REACTIONS (4)
  - CONSTIPATION [None]
  - DRUG INTERACTION [None]
  - DRY MOUTH [None]
  - TREMOR [None]
